FAERS Safety Report 5957443-4 (Version None)
Quarter: 2008Q4

REPORT INFORMATION
  Report Type: 
  Country: None (occurrence: None)
  Receive Date: 20081114
  Receipt Date: 20081015
  Transmission Date: 20090506
  Serious: Yes (Hospitalization)
  Sender: FDA-Public Use
  Company Number: 2008SP002854

PATIENT
  Sex: Female

DRUGS (3)
  1. ALVESCO [Suspect]
     Dosage: INHALATION
     Route: 055
     Dates: start: 20080101
  2. . [Concomitant]
  3. . [Concomitant]

REACTIONS (1)
  - LUNG INFECTION [None]
